FAERS Safety Report 16473424 (Version 1)
Quarter: 2019Q2

REPORT INFORMATION
  Report Type: Spontaneous
  Country: US (occurrence: US)
  Receive Date: 20190625
  Receipt Date: 20190625
  Transmission Date: 20190711
  Serious: Yes (Other)
  Sender: FDA-Public Use
  Company Number: US-PFIZER INC-2019271324

PATIENT

DRUGS (1)
  1. FLAGYL [Suspect]
     Active Substance: METRONIDAZOLE\METRONIDAZOLE HYDROCHLORIDE
     Dosage: UNK

REACTIONS (8)
  - Skin exfoliation [Not Recovered/Not Resolved]
  - Dry skin [Not Recovered/Not Resolved]
  - Abscess intestinal [Recovering/Resolving]
  - Rash papular [Not Recovered/Not Resolved]
  - Tendon pain [Recovered/Resolved]
  - Tongue fungal infection [Recovered/Resolved]
  - Gastrointestinal fistula [Recovering/Resolving]
  - Arthralgia [Recovered/Resolved]
